FAERS Safety Report 5818551-1 (Version None)
Quarter: 2008Q3

REPORT INFORMATION
  Report Type: 
  Country: None (occurrence: None)
  Receive Date: 20080718
  Receipt Date: 20080714
  Transmission Date: 20090109
  Serious: Yes (Hospitalization)
  Sender: FDA-Public Use
  Company Number: 029855

PATIENT
  Age: 54 Year
  Sex: Female
  Weight: 117.9 kg

DRUGS (5)
  1. WARFARIN SODIUM [Suspect]
     Indication: THROMBOSIS PROPHYLAXIS
     Dosage: 10 MG, 3/WEEK, ORAL; 7.5 MG, 3/WEEK, ORAL; 10 MG, 3/WQEEK
     Route: 048
     Dates: start: 20080529, end: 20080530
  2. WARFARIN SODIUM [Suspect]
     Indication: THROMBOSIS PROPHYLAXIS
     Dosage: 10 MG, 3/WEEK, ORAL; 7.5 MG, 3/WEEK, ORAL; 10 MG, 3/WQEEK
     Route: 048
     Dates: start: 20080531
  3. WARFARIN SODIUM [Suspect]
     Indication: THROMBOSIS PROPHYLAXIS
     Dosage: 10 MG, 3/WEEK, ORAL; 7.5 MG, 3/WEEK, ORAL; 10 MG, 3/WQEEK
     Route: 048
     Dates: start: 20080601
  4. BLINDED SCHNO 619734 (S-P) (P/NEUROKININ NK1 ANTAGONIST) (BLINDED SCHN [Suspect]
     Indication: PROPHYLAXIS OF NAUSEA AND VOMITING
     Dosage: 4 DF, ONCE, ORAL
     Route: 048
     Dates: start: 20080528, end: 20080528
  5. BLINDED SCHNO 619734 (S-P) (P/NEUROKININ NK1 ANTAGONIST) (BLINDED SCHN [Suspect]
     Indication: PROPHYLAXIS OF NAUSEA AND VOMITING
     Dosage: 2 ML, ONCE, INTRAVENOUS
     Route: 042
     Dates: start: 20080528, end: 20080528

REACTIONS (12)
  - ACUTE RESPIRATORY DISTRESS SYNDROME [None]
  - ATELECTASIS [None]
  - EMPHYSEMA [None]
  - HAEMOGLOBIN DECREASED [None]
  - HAEMORRHAGIC ASCITES [None]
  - HYPERGLYCAEMIA [None]
  - HYPOTENSION [None]
  - NAUSEA [None]
  - PERITONEAL HAEMORRHAGE [None]
  - PLEURAL EFFUSION [None]
  - SINUS TACHYCARDIA [None]
  - VISION BLURRED [None]
